FAERS Safety Report 8965748 (Version 1)
Quarter: 2012Q4

REPORT INFORMATION
  Report Type: Spontaneous
  Country: GB (occurrence: None)
  Receive Date: 20121204
  Receipt Date: 20121204
  Transmission Date: 20130627
  Serious: Yes (Other)
  Sender: FDA-Public Use
  Company Number: 2012-20895

PATIENT

DRUGS (1)
  1. MIRTAZAPINE [Suspect]
     Indication: DEPRESSION

REACTIONS (11)
  - Balance disorder [None]
  - Fall [None]
  - Coordination abnormal [None]
  - Restless legs syndrome [None]
  - Aggression [None]
  - Gait disturbance [None]
  - Agitation [None]
  - Tearfulness [None]
  - Diarrhoea [None]
  - Malaise [None]
  - Eating disorder [None]
